FAERS Safety Report 21035304 (Version 1)
Quarter: 2022Q3

REPORT INFORMATION
  Report Type: Spontaneous
  Country: US (occurrence: None)
  Receive Date: 20220701
  Receipt Date: 20220701
  Transmission Date: 20221027
  Serious: Yes (Hospitalization)
  Sender: FDA-Public Use
  Company Number: None

PATIENT
  Age: 58 Year
  Sex: Female
  Weight: 55.34 kg

DRUGS (1)
  1. SIMVASTATIN [Suspect]
     Active Substance: SIMVASTATIN
     Indication: Pancreatitis
     Dosage: FREQUENCY : DAILY;?
     Route: 048
     Dates: start: 20170530

REACTIONS (1)
  - Pancreatitis relapsing [None]

NARRATIVE: CASE EVENT DATE: 20170726
